FAERS Safety Report 9330520 (Version 2)
Quarter: 2013Q2

REPORT INFORMATION
  Report Type: Spontaneous
  Country: GB (occurrence: GB)
  Receive Date: 20130605
  Receipt Date: 20130613
  Transmission Date: 20140414
  Serious: Yes (Hospitalization)
  Sender: FDA-Public Use
  Company Number: GB-RANBAXY-2013R1-69764

PATIENT
  Age: 30 Year
  Sex: Female

DRUGS (3)
  1. NAPROXEN [Suspect]
     Indication: MYALGIA
     Dosage: UNK
     Route: 048
     Dates: start: 20130424, end: 20130502
  2. COPAXONE [Suspect]
     Indication: MULTIPLE SCLEROSIS
     Dosage: 20 MG, QD
     Route: 058
     Dates: start: 20130213
  3. GABAPENTIN [Concomitant]
     Indication: PAIN
     Dosage: UNK
     Route: 065
     Dates: end: 201208

REACTIONS (7)
  - Dizziness [Not Recovered/Not Resolved]
  - Palpitations [Recovered/Resolved]
  - Heart rate increased [Recovered/Resolved with Sequelae]
  - Myalgia [Unknown]
  - Nausea [Recovered/Resolved]
  - Speech disorder [Recovered/Resolved with Sequelae]
  - Paraesthesia oral [Recovered/Resolved with Sequelae]
